FAERS Safety Report 5988330-3 (Version None)
Quarter: 2008Q4

REPORT INFORMATION
  Report Type: 
  Country: None (occurrence: None)
  Receive Date: 20081204
  Receipt Date: 20081121
  Transmission Date: 20090506
  Serious: Yes (Other)
  Sender: FDA-Public Use
  Company Number: PAR_02445_2008

PATIENT
  Age: 57 Year
  Sex: Female
  Weight: 86.1834 kg

DRUGS (4)
  1. DOXEPIN 10 MG [Suspect]
     Indication: SYSTEMIC MASTOCYTOSIS
     Dosage: SEE IMAGE
     Route: 048
     Dates: end: 20060101
  2. DOXEPIN 10 MG [Suspect]
     Indication: SYSTEMIC MASTOCYTOSIS
     Dosage: SEE IMAGE
     Route: 048
     Dates: start: 20060401
  3. DOXEPIN 10 MG [Suspect]
     Indication: SYSTEMIC MASTOCYTOSIS
     Dosage: 10 MG QD, PLUS AN ADDITIONAL 10 MG PER DAY AS NEEDED ORAL
     Route: 048
     Dates: start: 20060101, end: 20060401
  4. ZANTAC /00550802/ [Concomitant]

REACTIONS (10)
  - BURNING SENSATION [None]
  - CHEST PAIN [None]
  - CONDITION AGGRAVATED [None]
  - DRUG INEFFECTIVE [None]
  - DYSPNOEA [None]
  - PAIN [None]
  - SYSTEMIC MASTOCYTOSIS [None]
  - THERAPEUTIC RESPONSE UNEXPECTED WITH DRUG SUBSTITUTION [None]
  - TREMOR [None]
  - WHITE BLOOD CELL DISORDER [None]
